FAERS Safety Report 9479740 (Version 1)
Quarter: 2013Q3

REPORT INFORMATION
  Report Type: Report from Study
  Country: CL (occurrence: CL)
  Receive Date: 20130828
  Receipt Date: 20130828
  Transmission Date: 20140515
  Serious: Yes (Death)
  Sender: FDA-Public Use
  Company Number: CL-ROCHE-1267370

PATIENT
  Age: 47 Year
  Sex: Female

DRUGS (1)
  1. XELODA [Suspect]
     Indication: GASTRIC CANCER
     Dosage: 14 DAY PER CYCLE
     Route: 048
     Dates: start: 20130304, end: 20130506

REACTIONS (1)
  - Disease progression [Fatal]
